FAERS Safety Report 22186874 (Version 2)
Quarter: 2023Q2

REPORT INFORMATION
  Report Type: Spontaneous
  Country: CZ (occurrence: CZ)
  Receive Date: 20230407
  Receipt Date: 20230627
  Transmission Date: 20230722
  Serious: Yes (Hospitalization, Other)
  Sender: FDA-Public Use
  Company Number: CZ-ROCHE-3317820

PATIENT
  Age: 70 Year
  Sex: Male

DRUGS (21)
  1. DOXORUBICIN HYDROCHLORIDE [Suspect]
     Active Substance: DOXORUBICIN HYDROCHLORIDE
     Indication: Diffuse large B-cell lymphoma
     Dosage: 21 DAYS, CYCLIC
     Dates: start: 20161205
  2. DOXORUBICIN HYDROCHLORIDE [Suspect]
     Active Substance: DOXORUBICIN HYDROCHLORIDE
     Dosage: 21 DAYS, CYCLIC
     Dates: start: 20161227
  3. DOXORUBICIN HYDROCHLORIDE [Suspect]
     Active Substance: DOXORUBICIN HYDROCHLORIDE
     Dosage: 21 DAYS, CYCLIC
     Dates: start: 20170117
  4. DOXORUBICIN HYDROCHLORIDE [Suspect]
     Active Substance: DOXORUBICIN HYDROCHLORIDE
     Dosage: 50 MG/M2, CYCLIC
     Route: 042
  5. RITUXIMAB [Suspect]
     Active Substance: RITUXIMAB
     Indication: Diffuse large B-cell lymphoma
     Dosage: 375 MG/M2 21 DAYS, CYCLIC
     Route: 042
     Dates: start: 20161205
  6. RITUXIMAB [Suspect]
     Active Substance: RITUXIMAB
     Dosage: 375 MG/M2 21 DAYS, CYCLIC
     Route: 042
     Dates: start: 20161227
  7. RITUXIMAB [Suspect]
     Active Substance: RITUXIMAB
     Dosage: 375 MG/M2 21 DAYS, CYCLIC
     Route: 042
     Dates: start: 20170117
  8. PREDNISONE [Suspect]
     Active Substance: PREDNISONE
     Indication: Diffuse large B-cell lymphoma
     Dosage: 100 MG, 1-5 DAYS AND EVERY 21 DAYS CYCLIC
     Route: 048
     Dates: start: 20161205
  9. PREDNISONE [Suspect]
     Active Substance: PREDNISONE
     Dosage: 100 MG, 1-5 DAYS AND EVERY 21 DAYS CYCLIC
     Dates: start: 20161227
  10. PREDNISONE [Suspect]
     Active Substance: PREDNISONE
     Dosage: 100 MG, 1-5 DAYS AND EVERY 21 DAYS CYCLIC
     Dates: start: 20170117
  11. VINCRISTINE [Suspect]
     Active Substance: VINCRISTINE
     Indication: Diffuse large B-cell lymphoma
     Dosage: 21 DAYS, CYCLIC
     Dates: start: 20161205
  12. VINCRISTINE [Suspect]
     Active Substance: VINCRISTINE
     Dosage: 21 DAYS, CYCLIC
     Dates: start: 20161227
  13. VINCRISTINE [Suspect]
     Active Substance: VINCRISTINE
     Dosage: 21 DAYS, CYCLIC
     Dates: start: 20170117
  14. VINCRISTINE [Suspect]
     Active Substance: VINCRISTINE
     Dosage: 1.4 MG/M2, CYCLIC
     Route: 042
  15. CYCLOPHOSPHAMIDE [Suspect]
     Active Substance: CYCLOPHOSPHAMIDE
     Indication: Diffuse large B-cell lymphoma
     Dosage: 750 MG/M2, CYCLIC
     Route: 042
  16. CYCLOPHOSPHAMIDE [Suspect]
     Active Substance: CYCLOPHOSPHAMIDE
     Dosage: 21 DAYS, CYCLIC
     Dates: start: 20161205
  17. CYCLOPHOSPHAMIDE [Suspect]
     Active Substance: CYCLOPHOSPHAMIDE
     Dosage: 21 DAYS, CYCLIC
     Dates: start: 20161227
  18. CYCLOPHOSPHAMIDE [Suspect]
     Active Substance: CYCLOPHOSPHAMIDE
     Dosage: 21 DAYS, CYCLIC
     Dates: start: 20170117
  19. PLACEBO [Suspect]
     Active Substance: UNSPECIFIED INGREDIENT
     Indication: Diffuse large B-cell lymphoma
     Dosage: 21 DAYS, CYCLIC
     Route: 048
     Dates: start: 20161205
  20. PLACEBO [Suspect]
     Active Substance: UNSPECIFIED INGREDIENT
     Dosage: 21 DAYS, CYCLIC
     Route: 048
     Dates: start: 20161227
  21. PLACEBO [Suspect]
     Active Substance: UNSPECIFIED INGREDIENT
     Dosage: 21 DAYS, CYCLIC
     Route: 048
     Dates: start: 20170117

REACTIONS (3)
  - Sepsis [Recovered/Resolved]
  - Pneumonia [Recovered/Resolved]
  - Febrile neutropenia [Recovered/Resolved]

NARRATIVE: CASE EVENT DATE: 20161027
